FAERS Safety Report 8372567-2 (Version None)
Quarter: 2012Q2

REPORT INFORMATION
  Report Type: 
  Country: None (occurrence: None)
  Receive Date: 20120521
  Receipt Date: 20120515
  Transmission Date: 20120825
  Serious: Yes (Hospitalization, Other)
  Sender: FDA-Public Use
  Company Number: PHEH2012US008807

PATIENT
  Sex: Male

DRUGS (19)
  1. DEPAKOTE [Concomitant]
     Dosage: 125 MG, UNK
  2. CITALOPRAM HYDROBROMIDE [Concomitant]
     Dosage: 20 MG, QD
  3. ACETAMINOPHEN [Concomitant]
  4. CLONAZEPAM [Concomitant]
  5. HALDOL [Concomitant]
     Dosage: 100 MG/ML, UNK
  6. AMITRIPTYLINE HCL [Concomitant]
     Dosage: 50 MG, QD
  7. DIVALPROEX SODIUM [Concomitant]
  8. KLONOPIN [Concomitant]
     Dosage: 2 MG, UNK
  9. TYLENOL PM, EXTRA STRENGTH [Concomitant]
  10. VITAMIN B-12 [Concomitant]
     Dosage: 1 MG, QD
     Route: 060
  11. PANTOPRAZOLE [Concomitant]
     Dosage: 40 MG, BID
  12. FOLIC ACID [Concomitant]
     Dosage: 0.8 MG, QD
     Route: 048
  13. PSYCHOTHERAPY [Suspect]
  14. METOPROLOL TARTRATE [Concomitant]
     Dosage: 50 MG, BID
  15. VITAMIN B12 + FOLIC ACID [Concomitant]
  16. HALOPERIDOL [Concomitant]
  17. EXJADE [Suspect]
     Indication: IRON OVERLOAD
     Dosage: 2000 MG, QD
     Route: 048
     Dates: start: 20120301, end: 20120414
  18. HALDOL [Concomitant]
     Dosage: 5 MG/ML, UNK
  19. DIPHENHYDRAMINE HCL [Concomitant]
     Dosage: 25 MG, QD

REACTIONS (13)
  - ENCEPHALOPATHY [None]
  - BLOOD PRESSURE SYSTOLIC INCREASED [None]
  - PRURITUS [None]
  - HEPATIC FUNCTION ABNORMAL [None]
  - CSF PROTEIN INCREASED [None]
  - THROMBOCYTOPENIA [None]
  - RENAL FAILURE ACUTE [None]
  - MENTAL DISORDER [None]
  - HYPOVOLAEMIA [None]
  - CONSTIPATION [None]
  - AMMONIA INCREASED [None]
  - HYPERSOMNIA [None]
  - OEDEMA PERIPHERAL [None]
